FAERS Safety Report 23943549 (Version 1)
Quarter: 2024Q2

REPORT INFORMATION
  Report Type: Spontaneous
  Country: BE (occurrence: BE)
  Receive Date: 20240606
  Receipt Date: 20240606
  Transmission Date: 20240716
  Serious: Yes (Life-Threatening)
  Sender: FDA-Public Use
  Company Number: None

PATIENT

DRUGS (1)
  1. WELLBUTRIN XL [Suspect]
     Active Substance: BUPROPION HYDROCHLORIDE
     Indication: Depression
     Dosage: 1 DF, QD (ONCE A DAY IN THE MORNING. I HAVE TAKEN THIS FOR ABOUT 3 YEARS)
     Route: 048
     Dates: end: 20240115

REACTIONS (6)
  - Musculoskeletal discomfort [Recovered/Resolved]
  - Fall [Recovered/Resolved]
  - Amnesia [Recovered/Resolved]
  - Balance disorder [Recovered/Resolved]
  - Stress [Recovered/Resolved]
  - Coordination abnormal [Recovered/Resolved]
